FAERS Safety Report 7524045-8 (Version None)
Quarter: 2011Q2

REPORT INFORMATION
  Report Type: 
  Country: None (occurrence: None)
  Receive Date: 20110605
  Receipt Date: 20110527
  Transmission Date: 20111010
  Serious: Yes (Other)
  Sender: FDA-Public Use
  Company Number: BE-BRISTOL-MYERS SQUIBB COMPANY-15517113

PATIENT
  Age: 65 Year
  Sex: Male
  Weight: 73 kg

DRUGS (3)
  1. FLUOROURACIL [Suspect]
     Indication: HEAD AND NECK CANCER
     Dosage: LAST INF ON :21OCT2010 NO OF INF:24 CONT INF FROM DY 1 TO DY 4 OF CYCLE
     Route: 042
     Dates: start: 20100614
  2. CISPLATIN [Suspect]
     Indication: HEAD AND NECK CANCER
     Dosage: LAST INF ON :18OCT2010 NO OF INF:6
     Route: 042
     Dates: start: 20100614
  3. CETUXIMAB [Suspect]
     Indication: HEAD AND NECK CANCER
     Dosage: NO OF INF:28 5MG/ML
     Route: 042
     Dates: start: 20100614, end: 20101229

REACTIONS (1)
  - ORGANISING PNEUMONIA [None]
